FAERS Safety Report 5156830-4 (Version None)
Quarter: 2006Q4

REPORT INFORMATION
  Report Type: 
  Country: None (occurrence: None)
  Receive Date: 20061114
  Receipt Date: 20061105
  Transmission Date: 20070319
  Serious: Yes (Hospitalization)
  Sender: FDA-Public Use
  Company Number: HQWYE610107NOV06

PATIENT
  Age: 33 Year
  Sex: Female

DRUGS (2)
  1. EFFEXOR XR [Suspect]
     Dosage: 20 CAPSULES OF 75 MG AND 6 CAPSULES OF 150 MG ORAL
     Route: 048
     Dates: start: 20061105, end: 20061105
  2. VALPROATE SODIUM [Suspect]
     Dosage: 20 TABLETS (OVERDOSE AMOUNT)
     Route: 048
     Dates: start: 20061105, end: 20061105

REACTIONS (2)
  - DRUG TOXICITY [None]
  - MULTIPLE DRUG OVERDOSE INTENTIONAL [None]
